FAERS Safety Report 7304845-X (Version None)
Quarter: 2011Q1

REPORT INFORMATION
  Report Type: 
  Country: None (occurrence: None)
  Receive Date: 20110222
  Receipt Date: 20110208
  Transmission Date: 20110831
  Serious: Yes (Life-Threatening, Hospitalization)
  Sender: FDA-Public Use
  Company Number: JP-CELGENEUS-087-21880-10091212

PATIENT
  Sex: Female

DRUGS (16)
  1. LENADEX [Suspect]
     Route: 048
     Dates: start: 20100903, end: 20100921
  2. REVLIMID [Suspect]
     Indication: MULTIPLE MYELOMA
     Route: 048
     Dates: start: 20100806, end: 20100810
  3. VALTREX [Concomitant]
     Route: 048
     Dates: start: 20101106
  4. REVLIMID [Suspect]
     Route: 048
     Dates: start: 20100903, end: 20100921
  5. LENADEX [Suspect]
     Route: 048
     Dates: start: 20100822, end: 20100824
  6. REVLIMID [Suspect]
     Route: 048
     Dates: start: 20101013, end: 20101017
  7. ZOMETA [Concomitant]
     Indication: MULTIPLE MYELOMA
     Route: 041
     Dates: start: 20100908, end: 20100908
  8. REVLIMID [Suspect]
     Route: 048
     Dates: start: 20101204, end: 20101214
  9. TAKEPRON [Concomitant]
     Route: 048
     Dates: start: 20101106
  10. MUCOSTA [Concomitant]
     Indication: MULTIPLE MYELOMA
     Route: 048
     Dates: start: 20100806
  11. VALTREX [Concomitant]
     Indication: PROPHYLAXIS
     Route: 048
     Dates: start: 20100806, end: 20100826
  12. REVLIMID [Suspect]
     Route: 048
     Dates: start: 20100812, end: 20100826
  13. LENADEX [Suspect]
     Route: 048
     Dates: start: 20100814, end: 20100816
  14. REVLIMID [Suspect]
     Route: 048
     Dates: start: 20101106, end: 20101126
  15. LENADEX [Suspect]
     Indication: MULTIPLE MYELOMA
     Route: 048
     Dates: start: 20100806, end: 20100809
  16. TAKEPRON [Concomitant]
     Indication: MULTIPLE MYELOMA
     Route: 048
     Dates: start: 20100806

REACTIONS (9)
  - EOSINOPHIL COUNT INCREASED [None]
  - BLOOD ALKALINE PHOSPHATASE INCREASED [None]
  - CEREBRAL INFARCTION [None]
  - RASH GENERALISED [None]
  - ASPARTATE AMINOTRANSFERASE INCREASED [None]
  - ALANINE AMINOTRANSFERASE INCREASED [None]
  - EOSINOPHILIA [None]
  - OTITIS MEDIA [None]
  - LIVER DISORDER [None]
